FAERS Safety Report 11563781 (Version 1)
Quarter: 2015Q3

REPORT INFORMATION
  Report Type: Other
  Country: GB (occurrence: GB)
  Receive Date: 20150928
  Receipt Date: 20150928
  Transmission Date: 20151125
  Serious: Yes (Other)
  Sender: FDA-Public Use
  Company Number: GB-ASTELLAS-2015US034987

PATIENT
  Age: 9 Decade
  Sex: Male
  Weight: 51 kg

DRUGS (1)
  1. BETMIGA [Suspect]
     Active Substance: MIRABEGRON
     Indication: LOWER URINARY TRACT SYMPTOMS
     Route: 048

REACTIONS (4)
  - Dyspnoea [Recovered/Resolved]
  - Abnormal weight gain [Recovered/Resolved]
  - Cardiac failure [Recovered/Resolved]
  - Fluid overload [Recovered/Resolved]
